FAERS Safety Report 7865188-9 (Version None)
Quarter: 2011Q4

REPORT INFORMATION
  Report Type: 
  Country: None (occurrence: None)
  Receive Date: 20111028
  Receipt Date: 20101028
  Transmission Date: 20120403
  Serious: No
  Sender: FDA-Public Use
  Company Number: US-GLAXOSMITHKLINE-A0889389A

PATIENT
  Age: 63 Year
  Sex: Female

DRUGS (5)
  1. OXYGEN [Concomitant]
  2. VENTOLIN HFA [Concomitant]
  3. ACETAMINOPHEN [Concomitant]
  4. ADVAIR DISKUS 100/50 [Suspect]
     Indication: CHRONIC OBSTRUCTIVE PULMONARY DISEASE
     Dosage: 1PUFF TWICE PER DAY
     Route: 055
     Dates: start: 20100928
  5. COMBIVENT [Concomitant]

REACTIONS (3)
  - DYSPHONIA [None]
  - CHEST DISCOMFORT [None]
  - APHONIA [None]
